FAERS Safety Report 18679615 (Version 1)
Quarter: 2020Q4

REPORT INFORMATION
  Report Type: Report from Study
  Country: DE (occurrence: DE)
  Receive Date: 20201229
  Receipt Date: 20201229
  Transmission Date: 20210114
  Serious: Yes (Life-Threatening, Hospitalization, Other)
  Sender: FDA-Public Use
  Company Number: DE-JNJFOC-A-CH2020-202292

PATIENT
  Age: 67 Year
  Sex: Male
  Weight: 71 kg

DRUGS (18)
  1. RAMIPRIL. [Concomitant]
     Active Substance: RAMIPRIL
     Indication: HYPERTENSION
     Dosage: UNK
     Route: 048
  2. ADCIRCA [Concomitant]
     Active Substance: TADALAFIL
     Dosage: 20 MG, QD
     Route: 048
     Dates: start: 20200318, end: 20200319
  3. OXYGEN. [Concomitant]
     Active Substance: OXYGEN
     Indication: PULMONARY FIBROSIS
     Dosage: UNK
     Route: 055
     Dates: start: 201907
  4. CONCOR [Concomitant]
     Active Substance: BISOPROLOL FUMARATE
     Indication: HYPERTENSION
     Dosage: UNK
     Route: 048
     Dates: end: 20200317
  5. PANTOPRAZOLE [Concomitant]
     Active Substance: PANTOPRAZOLE
     Indication: PROPHYLAXIS
     Dosage: UNK
     Route: 048
     Dates: start: 20190914, end: 20200221
  6. OPSUMIT [Suspect]
     Active Substance: MACITENTAN
     Indication: PULMONARY ARTERIAL HYPERTENSION
     Dosage: 10 MG, QD
     Route: 048
     Dates: start: 20190920, end: 20200201
  7. ADCIRCA [Concomitant]
     Active Substance: TADALAFIL
     Dosage: 40 MG, QD
     Route: 048
     Dates: start: 20200318
  8. OXYGEN. [Concomitant]
     Active Substance: OXYGEN
     Indication: PULMONARY ARTERIAL HYPERTENSION
     Dosage: 5-8 L/MIN
     Route: 055
     Dates: start: 20200318
  9. OXYGEN. [Concomitant]
     Active Substance: OXYGEN
     Indication: OXYGEN SATURATION DECREASED
  10. CLEXANE [Concomitant]
     Active Substance: ENOXAPARIN SODIUM
     Dosage: UNK
     Route: 058
     Dates: start: 20200317, end: 2020
  11. KONAKION [Concomitant]
     Active Substance: PHYTONADIONE
     Indication: PROPHYLAXIS
     Dosage: UNK
     Route: 048
     Dates: start: 20200321, end: 20200326
  12. OPSUMIT [Suspect]
     Active Substance: MACITENTAN
     Dosage: 10 MG, QD
     Route: 048
     Dates: start: 20200318
  13. ADCIRCA [Concomitant]
     Active Substance: TADALAFIL
     Indication: PULMONARY ARTERIAL HYPERTENSION
     Dosage: 20 MG, QD
     Route: 048
     Dates: start: 20190920, end: 20200201
  14. TAMSULOSIN [Concomitant]
     Active Substance: TAMSULOSIN
     Indication: BENIGN PROSTATIC HYPERPLASIA
     Dosage: UNK
     Route: 048
  15. CLEXANE [Concomitant]
     Active Substance: ENOXAPARIN SODIUM
     Indication: PROPHYLAXIS
     Dosage: UNK
     Route: 058
     Dates: start: 20190913, end: 20190920
  16. TORASEMID [Concomitant]
     Active Substance: TORSEMIDE
     Indication: PULMONARY ARTERIAL HYPERTENSION
     Dosage: UNK, PRN
     Route: 048
     Dates: start: 20190917, end: 2020
  17. PANTOPRAZOLE [Concomitant]
     Active Substance: PANTOPRAZOLE
     Dosage: UNK
     Route: 048
     Dates: start: 20200322
  18. CLEXANE [Concomitant]
     Active Substance: ENOXAPARIN SODIUM
     Dosage: UNK
     Route: 058
     Dates: start: 20200219, end: 20200228

REACTIONS (34)
  - Hemiparesis [Recovered/Resolved with Sequelae]
  - Atrial fibrillation [Unknown]
  - Anxiety [Recovered/Resolved]
  - Diverticulum intestinal [Not Recovered/Not Resolved]
  - Metastases to liver [Not Recovered/Not Resolved]
  - Abdominal pain [Not Recovered/Not Resolved]
  - Metastases to lung [Not Recovered/Not Resolved]
  - Atypical pneumonia [Recovered/Resolved]
  - Micturition disorder [Recovered/Resolved]
  - Bladder catheterisation [Unknown]
  - Liver disorder [Not Recovered/Not Resolved]
  - Arteriosclerosis [Recovered/Resolved]
  - Basilar artery aneurysm [Recovered/Resolved with Sequelae]
  - Lung infiltration [Recovered/Resolved]
  - Dyspnoea [Unknown]
  - Pulmonary embolism [Not Recovered/Not Resolved]
  - Rectal cancer [Not Recovered/Not Resolved]
  - Ventricular tachycardia [Recovered/Resolved]
  - Hypokalaemia [Recovered/Resolved]
  - Oxygen saturation decreased [Recovered/Resolved]
  - Cardiac ventricular thrombosis [Not Recovered/Not Resolved]
  - Metastases to lymph nodes [Unknown]
  - Priapism [Recovered/Resolved]
  - Oedema [Unknown]
  - Thrombolysis [Unknown]
  - Speech disorder [Recovered/Resolved with Sequelae]
  - Carotid artery stenosis [Unknown]
  - Right ventricular failure [Recovered/Resolved]
  - Scrotal swelling [Recovered/Resolved]
  - Ischaemic stroke [Recovered/Resolved with Sequelae]
  - Visual impairment [Recovered/Resolved with Sequelae]
  - Right hemisphere deficit syndrome [Recovered/Resolved with Sequelae]
  - Concomitant disease progression [Not Recovered/Not Resolved]
  - Cholelithiasis [Not Recovered/Not Resolved]

NARRATIVE: CASE EVENT DATE: 202001
